FAERS Safety Report 25766228 (Version 1)
Quarter: 2025Q3

REPORT INFORMATION
  Report Type: Spontaneous
  Country: US (occurrence: None)
  Receive Date: 20250904
  Receipt Date: 20250904
  Transmission Date: 20251020
  Serious: No
  Sender: FDA-CTU
  Company Number: None

PATIENT
  Age: 61 Year
  Sex: Female

DRUGS (1)
  1. TERIPARATIDE [Suspect]
     Active Substance: TERIPARATIDE
     Indication: Osteoporosis
     Dosage: OTHER STRENGTH : 250 MCG/ML;?FREQUENCY : DAILY;?
     Route: 058
     Dates: start: 20250318

REACTIONS (6)
  - Intestinal obstruction [None]
  - Hernia repair [None]
  - Injection site bruising [None]
  - Injection site pain [None]
  - Injection site haemorrhage [None]
  - Wrong technique in product usage process [None]

NARRATIVE: CASE EVENT DATE: 20250529
